FAERS Safety Report 12852486 (Version 1)
Quarter: 2016Q4

REPORT INFORMATION
  Report Type: Spontaneous
  Country: US (occurrence: US)
  Receive Date: 20161017
  Receipt Date: 20161017
  Transmission Date: 20170207
  Serious: Yes (Other)
  Sender: FDA-Public Use
  Company Number: US-JAZZ-2016-US-018238

PATIENT
  Age: 69 Year
  Sex: Female

DRUGS (15)
  1. LOSARTAN + HIDROCLOROTIAZIDA       /01625701/ [Concomitant]
  2. LEVOTHYROXINE. [Concomitant]
     Active Substance: LEVOTHYROXINE
  3. POTASSIUM CL [Concomitant]
     Active Substance: POTASSIUM CHLORIDE
  4. HYDROCHLOROTHIAZIDE. [Concomitant]
     Active Substance: HYDROCHLOROTHIAZIDE
  5. ATORVASTATIN [Concomitant]
     Active Substance: ATORVASTATIN
  6. ONGLYZA [Concomitant]
     Active Substance: SAXAGLIPTIN HYDROCHLORIDE
  7. METFORMIN HCL [Concomitant]
     Active Substance: METFORMIN HYDROCHLORIDE
  8. XYREM [Suspect]
     Active Substance: SODIUM OXYBATE
     Dosage: DOSE ADJUSTMENTS
     Route: 048
     Dates: start: 201409, end: 201505
  9. INVOKANA [Concomitant]
     Active Substance: CANAGLIFLOZIN
  10. GABAPENTIN. [Concomitant]
     Active Substance: GABAPENTIN
  11. XYREM [Suspect]
     Active Substance: SODIUM OXYBATE
     Indication: NARCOLEPSY
     Dosage: 2.25 G, BID
     Route: 048
     Dates: start: 201409, end: 201409
  12. XYREM [Suspect]
     Active Substance: SODIUM OXYBATE
     Dosage: 3 G, BID
     Route: 048
     Dates: start: 201505, end: 201609
  13. OMEGA 3 FISH OIL                   /01334101/ [Concomitant]
     Active Substance: FISH OIL
  14. CITALOPRAM [Concomitant]
     Active Substance: CITALOPRAM HYDROBROMIDE
  15. LAMOTRIGINE. [Concomitant]
     Active Substance: LAMOTRIGINE

REACTIONS (10)
  - Fall [Unknown]
  - Heart valve incompetence [Unknown]
  - Face injury [Unknown]
  - Diabetes mellitus [Not Recovered/Not Resolved]
  - Depression [Unknown]
  - Sleep-related eating disorder [Unknown]
  - Blood cholesterol increased [Recovering/Resolving]
  - Somnambulism [Unknown]
  - Soft tissue injury [Unknown]
  - Head injury [Unknown]

NARRATIVE: CASE EVENT DATE: 20160917
